FAERS Safety Report 21099302 (Version 4)
Quarter: 2022Q4

REPORT INFORMATION
  Report Type: Spontaneous
  Country: US (occurrence: US)
  Receive Date: 20220719
  Receipt Date: 20221221
  Transmission Date: 20230113
  Serious: No
  Sender: FDA-Public Use
  Company Number: US-BIOGEN-2022BI01140319

PATIENT
  Age: 57 Year
  Sex: Female

DRUGS (4)
  1. VUMERITY [Suspect]
     Active Substance: DIROXIMEL FUMARATE
     Indication: Multiple sclerosis
     Dosage: MAINTENANCE DOSE
     Route: 050
     Dates: start: 20220711
  2. VUMERITY [Suspect]
     Active Substance: DIROXIMEL FUMARATE
     Route: 050
     Dates: start: 20201218
  3. VUMERITY [Suspect]
     Active Substance: DIROXIMEL FUMARATE
     Dosage: MAINTENANCE DOSE
     Route: 050
     Dates: start: 20220712
  4. LORATADINE [Concomitant]
     Active Substance: LORATADINE
     Route: 050

REACTIONS (5)
  - Migraine [Not Recovered/Not Resolved]
  - Blood glucose increased [Unknown]
  - Illness [Unknown]
  - Multiple sclerosis relapse [Unknown]
  - Pruritus [Unknown]

NARRATIVE: CASE EVENT DATE: 20220701
